FAERS Safety Report 14471161 (Version 1)
Quarter: 2018Q1

REPORT INFORMATION
  Report Type: Spontaneous
  Country: FR (occurrence: FR)
  Receive Date: 20180131
  Receipt Date: 20180131
  Transmission Date: 20180509
  Serious: Yes (Life-Threatening)
  Sender: FDA-Public Use
  Company Number: FR-BAYER-2018-013923

PATIENT
  Age: 38 Year
  Sex: Female
  Weight: 74 kg

DRUGS (1)
  1. YAZ [Suspect]
     Active Substance: DROSPIRENONE\ETHINYL ESTRADIOL
     Indication: CONTRACEPTION
     Dosage: 1 DF, UNK
     Route: 048
     Dates: end: 20171231

REACTIONS (1)
  - Coronary artery dissection [Recovered/Resolved with Sequelae]

NARRATIVE: CASE EVENT DATE: 20171231
